FAERS Safety Report 23338956 (Version 1)
Quarter: 2023Q4

REPORT INFORMATION
  Report Type: Report from Study
  Country: US (occurrence: US)
  Receive Date: 20231226
  Receipt Date: 20231226
  Transmission Date: 20240109
  Serious: Yes (Other)
  Sender: FDA-Public Use
  Company Number: US-Stemline Therapeutics, Inc.-2023ST005214

PATIENT
  Age: 71 Year
  Sex: Female

DRUGS (4)
  1. ORSERDU [Suspect]
     Active Substance: ELACESTRANT
     Indication: Product used for unknown indication
     Route: 048
  2. LIDOCAINE [Concomitant]
     Active Substance: LIDOCAINE
     Indication: Arthralgia
  3. XTANDI [Concomitant]
     Active Substance: ENZALUTAMIDE
     Indication: Product used for unknown indication
  4. Pepto Bismul [Concomitant]
     Indication: Product used for unknown indication

REACTIONS (10)
  - Paralysis [Unknown]
  - Dyspepsia [Unknown]
  - Illness [Unknown]
  - Dyspepsia [Unknown]
  - Diarrhoea [Unknown]
  - Arthralgia [Unknown]
  - Muscle spasms [Unknown]
  - Dyskinesia [Unknown]
  - Weight decreased [Unknown]
  - Blood calcium decreased [Unknown]
